FAERS Safety Report 9259306 (Version 1)
Quarter: 2013Q2

REPORT INFORMATION
  Report Type: Spontaneous
  Country: US (occurrence: US)
  Receive Date: 20130427
  Receipt Date: 20130427
  Transmission Date: 20140414
  Serious: Yes (Hospitalization)
  Sender: FDA-Public Use
  Company Number: US-UCBSA-083194

PATIENT
  Age: 37 Year
  Sex: Female
  Weight: 63.5 kg

DRUGS (7)
  1. CIMZIA [Suspect]
     Indication: CROHN^S DISEASE
     Dates: start: 201303
  2. CIMZIA [Suspect]
     Indication: CROHN^S DISEASE
     Dates: start: 2012, end: 201303
  3. CIMZIA [Suspect]
     Indication: CROHN^S DISEASE
     Dosage: INDUCTION DOSE
     Dates: start: 201208, end: 2012
  4. PROZAC [Concomitant]
     Dosage: DAILY DOSE: 10 MG
  5. FISH OIL [Concomitant]
  6. MULTIVITAMIN [Concomitant]
  7. ENSURE [Concomitant]

REACTIONS (4)
  - Crohn^s disease [Recovering/Resolving]
  - Anal fistula [Recovering/Resolving]
  - Abscess [Unknown]
  - Nausea [Recovering/Resolving]
